FAERS Safety Report 8572492-8 (Version None)
Quarter: 2012Q2

REPORT INFORMATION
  Report Type: 
  Country: None (occurrence: None)
  Receive Date: 20120423
  Receipt Date: 20090908
  Transmission Date: 20120825
  Serious: Yes (Other)
  Sender: FDA-Public Use
  Company Number: PHEH2009US10700

PATIENT
  Age: 87 Year
  Sex: Female

DRUGS (6)
  1. CLONIDINE [Concomitant]
  2. AZOR [Concomitant]
  3. EXJADE [Suspect]
     Indication: IRON OVERLOAD
     Dosage: 1000 MG, QD, ORAL 500 MG
     Route: 048
  4. ALLOPURINOL [Concomitant]
  5. BYSTOLIC (NEVICOLOL HYDROCHLORIDE) [Concomitant]
  6. MAXZIDE [Concomitant]

REACTIONS (6)
  - DIARRHOEA [None]
  - HEADACHE [None]
  - PYREXIA [None]
  - LIP SWELLING [None]
  - RASH [None]
  - BLOOD IRON INCREASED [None]
